FAERS Safety Report 4492133-9 (Version None)
Quarter: 2004Q4

REPORT INFORMATION
  Report Type: 
  Country: None (occurrence: None)
  Receive Date: 20041103
  Receipt Date: 20040809
  Transmission Date: 20050328
  Serious: Yes (Hospitalization)
  Sender: FDA-Public Use
  Company Number: CA-GLAXOSMITHKLINE-A0521797A

PATIENT
  Age: 57 Year
  Sex: Male

DRUGS (3)
  1. AVANDIA [Suspect]
     Indication: DIABETES MELLITUS NON-INSULIN-DEPENDENT
     Dosage: 4MG IN THE MORNING
     Route: 048
     Dates: start: 20031118
  2. DIABETA [Concomitant]
     Indication: DIABETES MELLITUS NON-INSULIN-DEPENDENT
     Dosage: 5MG TWICE PER DAY
     Route: 048
     Dates: start: 20000101
  3. GLUCOPHAGE [Concomitant]
     Indication: DIABETES MELLITUS NON-INSULIN-DEPENDENT
     Dosage: 850MG THREE TIMES PER DAY
     Route: 048
     Dates: start: 20000101

REACTIONS (4)
  - DYSPEPSIA [None]
  - HEPATIC ENZYME INCREASED [None]
  - PANCREATITIS ACUTE [None]
  - STOMACH DISCOMFORT [None]
